FAERS Safety Report 6100221-6 (Version None)
Quarter: 2009Q1

REPORT INFORMATION
  Report Type: 
  Country: None (occurrence: None)
  Receive Date: 20090303
  Receipt Date: 20090225
  Transmission Date: 20090719
  Serious: Yes (Hospitalization)
  Sender: FDA-Public Use
  Company Number: JP-JNJFOC-20090300155

PATIENT
  Sex: Female

DRUGS (2)
  1. RISPERDAL ORO DISPERSIBLE TABLET [Suspect]
     Indication: SCHIZOPHRENIA
     Route: 048
  2. FLUNITRAZEPAM [Concomitant]
     Route: 065

REACTIONS (2)
  - GRANULOCYTE COUNT DECREASED [None]
  - WHITE BLOOD CELL COUNT DECREASED [None]
